FAERS Safety Report 6220476-7 (Version None)
Quarter: 2009Q2

REPORT INFORMATION
  Report Type: 
  Country: None (occurrence: None)
  Receive Date: 20090610
  Receipt Date: 20090604
  Transmission Date: 20091009
  Serious: Yes (Hospitalization, Other)
  Sender: FDA-Public Use
  Company Number: SE-BAYER-200918022GPV

PATIENT
  Age: 28 Year
  Sex: Female

DRUGS (2)
  1. BETAFERON [Suspect]
     Indication: MULTIPLE SCLEROSIS
     Route: 058
     Dates: start: 19950101
  2. MODAFINIL [Concomitant]
     Indication: FATIGUE

REACTIONS (5)
  - CONGESTIVE CARDIOMYOPATHY [None]
  - ERYSIPELAS [None]
  - IMMUNOGLOBULINS DECREASED [None]
  - OEDEMA PERIPHERAL [None]
  - SKIN INFECTION [None]
